FAERS Safety Report 13166933 (Version 1)
Quarter: 2017Q1

REPORT INFORMATION
  Report Type: Spontaneous
  Country: JP (occurrence: JP)
  Receive Date: 20170131
  Receipt Date: 20170131
  Transmission Date: 20170428
  Serious: Yes (Hospitalization)
  Sender: FDA-Public Use
  Company Number: JP-SA-2017SA014387

PATIENT
  Age: 25 Year
  Sex: Female

DRUGS (1)
  1. INSULIN GLARGINE [Suspect]
     Active Substance: INSULIN GLARGINE
     Indication: INTENTIONAL SELF-INJURY
     Dosage: DOSE:1200 UNIT(S)
     Route: 058
     Dates: start: 201605, end: 201605

REACTIONS (4)
  - Overdose [Recovering/Resolving]
  - Blood glucose decreased [Recovering/Resolving]
  - Altered state of consciousness [Recovering/Resolving]
  - Intentional overdose [Recovering/Resolving]

NARRATIVE: CASE EVENT DATE: 201605
